FAERS Safety Report 9226280 (Version 2)
Quarter: 2013Q2

REPORT INFORMATION
  Report Type: Spontaneous
  Country: US (occurrence: US)
  Receive Date: 20130411
  Receipt Date: 20130626
  Transmission Date: 20140414
  Serious: Yes (Hospitalization, Other)
  Sender: FDA-Public Use
  Company Number: US-ROXANE LABORATORIES, INC.-2013-RO-00461RO

PATIENT
  Age: 42 Year
  Sex: Male

DRUGS (1)
  1. QUETIAPINE FUMARATE [Suspect]
     Indication: SCHIZOPHRENIA
     Dosage: 400 MG
     Route: 048

REACTIONS (5)
  - Sepsis [Unknown]
  - Electrocardiogram QT prolonged [Recovered/Resolved]
  - Renal failure [Unknown]
  - Adrenal insufficiency [Unknown]
  - Acute respiratory distress syndrome [Unknown]
